FAERS Safety Report 5794602-8 (Version None)
Quarter: 2008Q2

REPORT INFORMATION
  Report Type: 
  Country: None (occurrence: None)
  Receive Date: 20080627
  Receipt Date: 20080627
  Transmission Date: 20081010
  Serious: Yes (Hospitalization)
  Sender: FDA-Public Use
  Company Number: None

PATIENT
  Sex: Female
  Weight: 99.7913 kg

DRUGS (11)
  1. COUMADIN [Suspect]
     Indication: ANTICOAGULANT THERAPY
     Dosage: 2.5 MG PO QDAY PRIOR TO ADMISSION
     Route: 048
  2. OXYCODONE HCL [Concomitant]
  3. PRANDIN [Concomitant]
  4. JANUVIA [Concomitant]
  5. POTASSIUM CHLORIDE [Concomitant]
  6. LIPITOR [Concomitant]
  7. AMBIEN [Concomitant]
  8. AVANDAMET [Concomitant]
  9. AVALIDE [Concomitant]
  10. EFFEXOR XR [Concomitant]
  11. BONIVA [Concomitant]

REACTIONS (3)
  - COAGULOPATHY [None]
  - INTERNATIONAL NORMALISED RATIO INCREASED [None]
  - PROTHROMBIN TIME PROLONGED [None]
